FAERS Safety Report 25249497 (Version 6)
Quarter: 2025Q2

REPORT INFORMATION
  Report Type: Report from Study
  Country: IL (occurrence: IL)
  Receive Date: 20250429
  Receipt Date: 20250601
  Transmission Date: 20250717
  Serious: Yes (Other)
  Sender: ABBVIE
  Company Number: IL-ABBVIE-6253866

PATIENT
  Age: 76 Year
  Sex: Female

DRUGS (2)
  1. CARBIDOPA\LEVODOPA [Suspect]
     Active Substance: CARBIDOPA\LEVODOPA
     Indication: Parkinson^s disease
     Route: 050
     Dates: end: 20250502
  2. CARBIDOPA\LEVODOPA [Suspect]
     Active Substance: CARBIDOPA\LEVODOPA
     Route: 050
     Dates: start: 20230808

REACTIONS (10)
  - Hip fracture [Unknown]
  - Loss of consciousness [Unknown]
  - Stoma site irritation [Unknown]
  - Fall [Recovered/Resolved]
  - Confusional state [Unknown]
  - Stoma site discharge [Unknown]
  - Contusion [Unknown]
  - Pelvic pain [Unknown]
  - Musculoskeletal disorder [Unknown]
  - On and off phenomenon [Unknown]

NARRATIVE: CASE EVENT DATE: 20250401
